FAERS Safety Report 12992997 (Version 2)
Quarter: 2016Q4

REPORT INFORMATION
  Report Type: Spontaneous
  Country: US (occurrence: US)
  Receive Date: 20161202
  Receipt Date: 20161214
  Transmission Date: 20170207
  Serious: Yes (Hospitalization, Other)
  Sender: FDA-Public Use
  Company Number: US-AUROBINDO-AUR-APL-2016-14533

PATIENT
  Age: 76 Year
  Sex: Female

DRUGS (1)
  1. ROSUVASTATIN 40MG [Suspect]
     Active Substance: ROSUVASTATIN
     Indication: PRODUCT USED FOR UNKNOWN INDICATION
     Dosage: 40 MG, UNK
     Route: 065

REACTIONS (9)
  - Myalgia [Recovering/Resolving]
  - Urine output decreased [Recovering/Resolving]
  - Myositis [Recovered/Resolved]
  - Rhabdomyolysis [Recovered/Resolved]
  - Abdominal pain [Recovering/Resolving]
  - Acute kidney injury [Recovering/Resolving]
  - Transaminases increased [Unknown]
  - Pancreatitis acute [Recovered/Resolved]
  - Multiple organ dysfunction syndrome [Recovering/Resolving]
